FAERS Safety Report 7708492-7 (Version None)
Quarter: 2011Q3

REPORT INFORMATION
  Report Type: 
  Country: None (occurrence: None)
  Receive Date: 20110825
  Receipt Date: 20110819
  Transmission Date: 20111222
  Serious: Yes (Death)
  Sender: FDA-Public Use
  Company Number: JP-JNJFOC-20110610370

PATIENT
  Sex: Female
  Weight: 60 kg

DRUGS (26)
  1. MUCOSTA [Concomitant]
     Indication: PROPHYLAXIS
     Route: 048
     Dates: start: 20090924, end: 20090927
  2. DOXORUBICIN HCL [Suspect]
     Route: 042
     Dates: start: 20091125, end: 20091125
  3. DEXTROMETHORPHAN HYDROBROMIDE [Concomitant]
     Indication: NASOPHARYNGITIS
     Route: 048
     Dates: start: 20090925, end: 20090928
  4. POLARAMINE [Concomitant]
     Route: 042
     Dates: start: 20090909, end: 20090909
  5. JUZEN-TAIHO-TO [Concomitant]
     Route: 048
     Dates: end: 20090924
  6. RAMELTEON [Concomitant]
     Route: 042
     Dates: start: 20090909, end: 20090909
  7. FLOMAX [Concomitant]
     Indication: PROPHYLAXIS
     Route: 048
     Dates: start: 20090924, end: 20090927
  8. LEVOFLOXACIN [Concomitant]
     Indication: NASOPHARYNGITIS
     Route: 048
     Dates: start: 20090928, end: 20090929
  9. DEXAMETHASONE SODIUM PHOSPHATE [Concomitant]
     Indication: PROPHYLAXIS
     Route: 042
     Dates: start: 20090909, end: 20090909
  10. POLARAMINE [Concomitant]
     Indication: PROPHYLAXIS
     Route: 042
     Dates: start: 20091125, end: 20091125
  11. POLARAMINE [Concomitant]
     Route: 042
     Dates: start: 20091125, end: 20091125
  12. ZOLPIDEM [Concomitant]
     Route: 048
     Dates: end: 20100906
  13. PRIMPERAN TAB [Concomitant]
     Route: 048
     Dates: end: 20100906
  14. DOXORUBICIN HCL [Suspect]
     Route: 042
     Dates: start: 20100108, end: 20100108
  15. DOXORUBICIN HCL [Suspect]
     Route: 042
     Dates: start: 20100726, end: 20100726
  16. DOXORUBICIN HCL [Suspect]
     Route: 042
     Dates: start: 20100827, end: 20100827
  17. RAMELTEON [Concomitant]
     Indication: PROPHYLAXIS
     Route: 042
     Dates: start: 20091125, end: 20091125
  18. DEXAMETHASONE SODIUM PHOSPHATE [Concomitant]
     Route: 042
     Dates: start: 20091125, end: 20091125
  19. NON-PYRINE COLD PREPARATION [Concomitant]
     Indication: NASOPHARYNGITIS
     Route: 048
     Dates: start: 20091120, end: 20091121
  20. DOXORUBICIN HCL [Suspect]
     Indication: OVARIAN CANCER RECURRENT
     Route: 042
     Dates: start: 20090909, end: 20090909
  21. LOXONIN [Concomitant]
     Indication: NASOPHARYNGITIS
     Route: 048
     Dates: start: 20090927, end: 20090928
  22. POLARAMINE [Concomitant]
     Indication: INFUSION RELATED REACTION
     Route: 042
     Dates: start: 20090909, end: 20090909
  23. MAGMITT [Concomitant]
     Route: 048
     Dates: end: 20100906
  24. DOXORUBICIN HCL [Suspect]
     Route: 042
     Dates: start: 20100524, end: 20100524
  25. DOXORUBICIN HCL [Suspect]
     Route: 042
     Dates: start: 20100624, end: 20100624
  26. DOXORUBICIN HCL [Suspect]
     Route: 042
     Dates: start: 20100416, end: 20100416

REACTIONS (2)
  - OVARIAN CANCER RECURRENT [None]
  - DEATH [None]
